FAERS Safety Report 19853463 (Version 1)
Quarter: 2021Q3

REPORT INFORMATION
  Report Type: Spontaneous
  Country: GB (occurrence: GB)
  Receive Date: 20210919
  Receipt Date: 20210919
  Transmission Date: 20211014
  Serious: Yes (Other)
  Sender: FDA-Public Use
  Company Number: NVSC2021GB204323

PATIENT
  Sex: Female

DRUGS (4)
  1. MENINGOCOCCAL POLYSACCHARIDE VACCINE, GROUPS A AND C COMBINED NOS [Suspect]
     Active Substance: MENINGOCOCCAL POLYSACCHARIDE VACCINE, GROUPS A AND C COMBINED\NEISSERIA MENINGITIDIS GROUP A CAPSULAR POLYSACCHARIDE ANTIGEN\NEISSERIA MENINGITIDIS GROUP C CAPSULAR POLYSACCHARIDE ANTIGEN
     Indication: IMMUNISATION
     Dosage: UNK
     Route: 065
     Dates: start: 20010823
  2. AVAXIM [Suspect]
     Active Substance: HEPATITIS A VACCINE, INACTIVATED
     Indication: IMMUNISATION
     Dosage: UNK
     Route: 065
     Dates: start: 20010823
  3. STAMARIL [Suspect]
     Active Substance: YELLOW FEVER VIRUS STRAIN 17D-204 LIVE ANTIGEN
     Indication: IMMUNISATION
     Dosage: UNK
     Route: 065
     Dates: start: 20010823
  4. ARTEMETHER,LUMEFANTRINE [Suspect]
     Active Substance: ARTEMETHER\LUMEFANTRINE
     Indication: MALARIA
     Dosage: UNK
     Route: 065
     Dates: start: 20010823

REACTIONS (1)
  - Anaphylactic shock [Unknown]
